FAERS Safety Report 4366167-9 (Version None)
Quarter: 2004Q2

REPORT INFORMATION
  Report Type: 
  Country: None (occurrence: None)
  Receive Date: 20040524
  Receipt Date: 20040511
  Transmission Date: 20050107
  Serious: Yes (Hospitalization)
  Sender: FDA-Public Use
  Company Number: 04P-150-0260501-00

PATIENT
  Age: 72 Year
  Sex: Female

DRUGS (5)
  1. VALPROATE SODIUM [Suspect]
     Indication: EPILEPSY
     Dosage: 1500 MG,  DAILY
     Dates: start: 20010101, end: 20020101
  2. PIVMECILLINAM (PIVMECILLINAM) [Suspect]
     Indication: URINARY TRACT INFECTION
     Dosage: 200 MG, 3 IN 1 D
     Dates: start: 20020101, end: 20020101
  3. NORFLOXACIN [Concomitant]
  4. CEFUROXIME [Concomitant]
  5. GABAPENTIN [Concomitant]

REACTIONS (7)
  - DRUG INTERACTION [None]
  - DRUG LEVEL INCREASED [None]
  - DYSARTHRIA [None]
  - ENCEPHALOPATHY [None]
  - HYPERAMMONAEMIA [None]
  - STUPOR [None]
  - URINARY TRACT INFECTION [None]
